FAERS Safety Report 25865307 (Version 4)
Quarter: 2025Q4

REPORT INFORMATION
  Report Type: Spontaneous
  Country: US (occurrence: US)
  Receive Date: 20250930
  Receipt Date: 20251204
  Transmission Date: 20260117
  Serious: No
  Sender: TRAVERE THERAPEUTICS
  Company Number: US-TRAVERE-2025TVT01488

PATIENT
  Age: 76 Year
  Sex: Male

DRUGS (1)
  1. FILSPARI [Suspect]
     Active Substance: SPARSENTAN
     Indication: IgA nephropathy
     Dosage: LOT NUMBER: 1979025, EXPIRY DATE: 30-AUG-2026?LOT NUMBER: 1979026, EXPIRY DATE: 30-AUG-2027
     Route: 048
     Dates: start: 202507

REACTIONS (6)
  - Peripheral swelling [Recovered/Resolved]
  - Joint swelling [Recovered/Resolved]
  - Weight increased [Unknown]
  - Anaemia [Unknown]
  - Insomnia [Unknown]
  - Therapeutic response decreased [Unknown]
